FAERS Safety Report 16396587 (Version 1)
Quarter: 2019Q2

REPORT INFORMATION
  Report Type: Spontaneous
  Country: TN (occurrence: TN)
  Receive Date: 20190606
  Receipt Date: 20190606
  Transmission Date: 20190711
  Serious: Yes (Other)
  Sender: FDA-Public Use
  Company Number: TN-AXELLIA-002507

PATIENT
  Age: 35 Year
  Sex: Male

DRUGS (9)
  1. AMPHOTERICIN B/AMPHOTERICIN B/LIPOSOME [Suspect]
     Active Substance: AMPHOTERICIN B
     Indication: PYREXIA
  2. PIPERACILLIN SODIUM/TAZOBACTAM SODIUM [Suspect]
     Active Substance: PIPERACILLIN SODIUM\TAZOBACTAM SODIUM
     Indication: PYREXIA
  3. VANCOMYCIN [Concomitant]
     Active Substance: VANCOMYCIN
     Indication: PYREXIA
  4. CYTARABINE. [Suspect]
     Active Substance: CYTARABINE
     Indication: ACUTE LYMPHOCYTIC LEUKAEMIA
     Dosage: HIGH-DOSE, TWICE DAILY FOR FOUR DAYS
  5. COLISTIN [Suspect]
     Active Substance: COLISTIN
     Indication: PYREXIA
  6. CYTARABINE/CYTARABINE HYDROCHLORIDE/CYTARABINE OCFOSFATE [Suspect]
     Active Substance: CYTARABINE
     Indication: ACUTE LYMPHOCYTIC LEUKAEMIA RECURRENT
     Dosage: HIGH-DOSE, TWICE DAILY FOR FOUR DAYS
  7. AMIKACIN. [Suspect]
     Active Substance: AMIKACIN
     Indication: PYREXIA
  8. IMIPENEM [Suspect]
     Active Substance: IMIPENEM
     Indication: PYREXIA
  9. IDARUBICIN [Suspect]
     Active Substance: IDARUBICIN
     Indication: B PRECURSOR TYPE ACUTE LEUKAEMIA
     Dosage: HIGH-DOSE, PER DAY FOR THREE DAYS

REACTIONS (2)
  - Geotrichum infection [Recovered/Resolved]
  - Diarrhoea [Unknown]
